FAERS Safety Report 8879699 (Version 1)
Quarter: 2012Q4

REPORT INFORMATION
  Report Type: 
  Country: KR (occurrence: KR)
  Receive Date: 20121101
  Receipt Date: 20121101
  Transmission Date: 20130627
  Serious: Yes (Hospitalization)
  Sender: FDA-Public Use
  Company Number: KR-ASTELLAS-2012JP010141

PATIENT
  Age: 22 Year
  Sex: Female
  Weight: 49 kg

DRUGS (5)
  1. TACROLIMUS [Suspect]
     Indication: IMMUNOSUPPRESSANT DRUG THERAPY
     Dosage: 11 mg, Unknown/D
     Route: 065
  2. TACROLIMUS [Suspect]
     Dosage: 4 mg, bid
     Route: 065
  3. CORTICOSTEROIDS [Suspect]
     Indication: IMMUNOSUPPRESSANT DRUG THERAPY
     Route: 065
  4. CORTICOSTEROIDS [Suspect]
     Route: 065
  5. MYCOPHENOLATE MOFETIL [Concomitant]
     Indication: IMMUNOSUPPRESSANT DRUG THERAPY
     Route: 065

REACTIONS (2)
  - Pancreatitis acute [Recovering/Resolving]
  - Diabetic ketoacidosis [Recovering/Resolving]
